FAERS Safety Report 9303058 (Version 3)
Quarter: 2013Q3

REPORT INFORMATION
  Report Type: Report from Study
  Country: JP (occurrence: JP)
  Receive Date: 20130522
  Receipt Date: 20130912
  Transmission Date: 20140515
  Serious: Yes (Disabling)
  Sender: FDA-Public Use
  Company Number: JP-AMGEN-JPNCT2013035969

PATIENT
  Age: 74 Year
  Sex: Male
  Weight: 68 kg

DRUGS (23)
  1. DARBEPOETIN ALFA [Suspect]
     Indication: NEPHROGENIC ANAEMIA
     Dosage: 60 MUG, QD
     Route: 058
     Dates: start: 20110413, end: 20110413
  2. DARBEPOETIN ALFA [Suspect]
     Dosage: 60 MUG, QD
     Route: 058
     Dates: start: 20110630, end: 20110630
  3. DARBEPOETIN ALFA [Suspect]
     Dosage: 60 MUG, QD
     Route: 058
     Dates: start: 20110901, end: 20110901
  4. DARBEPOETIN ALFA [Suspect]
     Dosage: 60 MUG, QD
     Route: 058
     Dates: start: 20111110, end: 20111110
  5. DARBEPOETIN ALFA [Suspect]
     Dosage: 60 MUG, QD
     Route: 058
     Dates: start: 20111208, end: 20111208
  6. DARBEPOETIN ALFA [Suspect]
     Dosage: 60 MUG, QD
     Route: 058
     Dates: start: 20120308, end: 20120308
  7. DARBEPOETIN ALFA [Suspect]
     Dosage: 60 MUG, Q4WK
     Route: 058
     Dates: start: 20120419, end: 20120517
  8. DARBEPOETIN ALFA [Suspect]
     Dosage: 60 MUG, QD
     Route: 058
     Dates: start: 20120614, end: 20120614
  9. DARBEPOETIN ALFA [Suspect]
     Dosage: 60 MUG, Q3WK
     Route: 058
     Dates: start: 20120816, end: 20120906
  10. DARBEPOETIN ALFA [Suspect]
     Dosage: 60 MUG, Q4WK
     Route: 058
     Dates: start: 20121004, end: 20121101
  11. DARBEPOETIN ALFA [Suspect]
     Dosage: 60 MUG, QD
     Route: 058
     Dates: start: 20121206, end: 20121206
  12. DARBEPOETIN ALFA [Suspect]
     Dosage: 60 MUG, Q3WK
     Route: 058
     Dates: start: 20130124
  13. LASIX [Suspect]
     Indication: PRODUCT USED FOR UNKNOWN INDICATION
     Dosage: UNK
     Route: 048
  14. OLMETEC [Concomitant]
     Dosage: UNK
     Route: 048
  15. ADALAT CR [Concomitant]
     Dosage: UNK
     Route: 048
  16. PARIET [Concomitant]
     Dosage: UNK
     Route: 048
  17. ARGAMATE [Concomitant]
     Dosage: UNK
     Route: 048
  18. ALOSITOL [Concomitant]
     Dosage: UNK
     Route: 048
  19. CRESTOR [Concomitant]
     Dosage: UNK
     Route: 048
  20. WARFARIN [Concomitant]
     Dosage: UNK
     Route: 048
  21. SORBITOL [Concomitant]
     Dosage: UNK
     Route: 048
  22. CONIEL [Concomitant]
     Dosage: UNK
     Route: 048
  23. FEBURIC [Concomitant]
     Dosage: UNK
     Route: 048

REACTIONS (3)
  - Renal impairment [Not Recovered/Not Resolved]
  - Protein urine present [Not Recovered/Not Resolved]
  - Renal impairment [Recovered/Resolved]
